FAERS Safety Report 10099220 (Version 1)
Quarter: 2014Q2

REPORT INFORMATION
  Report Type: Spontaneous
  Country: US (occurrence: US)
  Receive Date: 20140423
  Receipt Date: 20140423
  Transmission Date: 20141212
  Serious: No
  Sender: FDA-Public Use
  Company Number: US-GILEAD-2013-0068524

PATIENT
  Sex: Female

DRUGS (2)
  1. LETAIRIS [Suspect]
     Indication: PULMONARY ARTERIAL HYPERTENSION
     Dosage: 5 MG, QD
     Dates: start: 20130117
  2. VENTAVIS [Concomitant]

REACTIONS (4)
  - Tachycardia [Unknown]
  - Chest discomfort [Unknown]
  - Erythema [Unknown]
  - Peripheral swelling [Unknown]
